FAERS Safety Report 16790228 (Version 5)
Quarter: 2020Q3

REPORT INFORMATION
  Report Type: Report from Study
  Country: BR (occurrence: BR)
  Receive Date: 20190910
  Receipt Date: 20200724
  Transmission Date: 20201102
  Serious: Yes (Other)
  Sender: FDA-Public Use
  Company Number: PHHY2019BR209347

PATIENT
  Age: 50 Year
  Sex: Female

DRUGS (5)
  1. SERTRALINE [Suspect]
     Active Substance: SERTRALINE HYDROCHLORIDE
     Indication: PRODUCT USED FOR UNKNOWN INDICATION
     Dosage: 3 DF (50 MG)
     Route: 065
  2. SERTRALINE [Suspect]
     Active Substance: SERTRALINE HYDROCHLORIDE
     Dosage: 3 DF (50 MG, 2 TABLETS IN THE MORNING AND 1 TABLET AT NIGHT)
     Route: 065
  3. COSENTYX [Suspect]
     Active Substance: SECUKINUMAB
     Indication: PSORIASIS
     Dosage: UNK UNK, QMO
     Route: 065
     Dates: start: 20190820
  4. LOSARTAN. [Concomitant]
     Active Substance: LOSARTAN
     Indication: BLOOD PRESSURE ABNORMAL
     Dosage: 50 MG IN THE MORNING DAILY, QD
     Route: 065
     Dates: start: 20190902
  5. ABLOK [Concomitant]
     Active Substance: ATENOLOL
     Indication: BLOOD PRESSURE ABNORMAL
     Dosage: 25 MG, AT 9.00 PM
     Route: 065

REACTIONS (26)
  - Hypertensive crisis [Recovering/Resolving]
  - Blood pressure fluctuation [Recovered/Resolved]
  - Mental disorder [Recovered/Resolved]
  - Tremor [Recovered/Resolved]
  - Anxiety [Recovered/Resolved]
  - Crying [Recovered/Resolved]
  - Anxiety [Unknown]
  - Headache [Recovered/Resolved]
  - Blood pressure increased [Recovered/Resolved]
  - Head discomfort [Recovered/Resolved]
  - Paraesthesia oral [Recovered/Resolved]
  - Scar [Unknown]
  - Hypertension [Recovered/Resolved]
  - Psoriasis [Unknown]
  - Hypertension [Recovered/Resolved]
  - Paraesthesia [Recovered/Resolved]
  - Ocular discomfort [Recovered/Resolved]
  - Feeling abnormal [Recovered/Resolved]
  - Wound [Recovered/Resolved]
  - Insomnia [Recovered/Resolved]
  - Memory impairment [Unknown]
  - Vomiting [Unknown]
  - Rheumatoid arthritis [Unknown]
  - Malaise [Recovered/Resolved]
  - Nausea [Recovered/Resolved]
  - Nightmare [Recovered/Resolved]

NARRATIVE: CASE EVENT DATE: 20190830
